FAERS Safety Report 17323217 (Version 1)
Quarter: 2020Q1

REPORT INFORMATION
  Report Type: Spontaneous
  Country: US (occurrence: US)
  Receive Date: 20200127
  Receipt Date: 20200127
  Transmission Date: 20200409
  Serious: No
  Sender: FDA-Public Use
  Company Number: US-ACORDA-ACO_162825_2019

PATIENT

DRUGS (1)
  1. AMPYRA [Suspect]
     Active Substance: DALFAMPRIDINE
     Indication: PRODUCT USED FOR UNKNOWN INDICATION
     Dosage: UNK
     Route: 065

REACTIONS (8)
  - Antinuclear antibody positive [Unknown]
  - Myelitis transverse [Unknown]
  - Demyelination [Unknown]
  - Ophthalmoplegia [Unknown]
  - Multiple sclerosis [Unknown]
  - Gait disturbance [Unknown]
  - Normal pressure hydrocephalus [Unknown]
  - Hepatitis B core antibody [Unknown]
